FAERS Safety Report 9472381 (Version 1)
Quarter: 2013Q3

REPORT INFORMATION
  Report Type: Spontaneous
  Country: US (occurrence: None)
  Receive Date: 20130821
  Receipt Date: 20130821
  Transmission Date: 20140515
  Serious: Yes (Other)
  Sender: FDA-Public Use
  Company Number: None

PATIENT
  Age: 37 Year
  Sex: Female
  Weight: 47.63 kg

DRUGS (1)
  1. AMOX TR-K CLV [Suspect]
     Indication: SINUSITIS
     Route: 048
     Dates: start: 20130626, end: 20130702

REACTIONS (2)
  - Tooth disorder [None]
  - Enamel anomaly [None]
